FAERS Safety Report 5399694-6 (Version None)
Quarter: 2007Q3

REPORT INFORMATION
  Report Type: 
  Country: None (occurrence: None)
  Receive Date: 20070727
  Receipt Date: 20070719
  Transmission Date: 20080115
  Serious: Yes (Hospitalization)
  Sender: FDA-Public Use
  Company Number: JP-ABBOTT-05P-087-0305305-00

PATIENT
  Sex: Female
  Weight: 48 kg

DRUGS (15)
  1. HUMIRA [Suspect]
     Indication: RHEUMATOID ARTHRITIS
     Route: 058
     Dates: start: 20041217, end: 20050421
  2. HUMIRA [Suspect]
     Route: 058
     Dates: start: 20050506, end: 20050630
  3. HUMIRA [Suspect]
     Route: 058
     Dates: start: 20050728, end: 20051216
  4. HUMIRA [Suspect]
     Route: 058
     Dates: start: 20051228
  5. ATORVASTATIN CALCIUM [Concomitant]
     Indication: HYPERLIPIDAEMIA
     Route: 048
     Dates: start: 20040109
  6. RABEPRAZOLE SODIUM [Concomitant]
     Indication: PROPHYLAXIS AGAINST GASTROINTESTINAL ULCER
     Route: 048
     Dates: start: 20040109
  7. REBAMIPIDE [Concomitant]
     Indication: PROPHYLAXIS AGAINST GASTROINTESTINAL ULCER
     Route: 048
     Dates: start: 20040109
  8. PREDNISOLONE [Concomitant]
     Indication: RHEUMATOID ARTHRITIS
     Route: 048
     Dates: start: 20040109
  9. VOLTAREN [Concomitant]
     Indication: RHEUMATOID ARTHRITIS
     Route: 048
     Dates: start: 20040109
  10. FARNERATE [Concomitant]
     Indication: RHEUMATOID ARTHRITIS
     Dates: start: 20041209, end: 20041216
  11. PREDNISONE [Concomitant]
     Indication: RHEUMATOID ARTHRITIS
     Dates: start: 20060131, end: 20060201
  12. PREDNISONE [Concomitant]
     Dates: start: 20060202, end: 20060202
  13. PREDNISONE [Concomitant]
     Dates: start: 20060207, end: 20060209
  14. PREDNISONE [Concomitant]
     Dates: start: 20060211, end: 20060211
  15. PL (NON-PYRINE PREPARATION FOR COLD SYMPTOMS) [Concomitant]
     Indication: NASOPHARYNGITIS
     Route: 048
     Dates: start: 20070111, end: 20070115

REACTIONS (5)
  - DEEP VEIN THROMBOSIS [None]
  - GASTROENTERITIS [None]
  - JOINT DESTRUCTION [None]
  - NEURILEMMOMA BENIGN [None]
  - TRANSIENT ISCHAEMIC ATTACK [None]
